FAERS Safety Report 4587297-2 (Version None)
Quarter: 2005Q1

REPORT INFORMATION
  Report Type: 
  Country: None (occurrence: None)
  Receive Date: 20050218
  Receipt Date: 20050210
  Transmission Date: 20050727
  Serious: Yes (Hospitalization)
  Sender: FDA-Public Use
  Company Number: US-BRISTOL-MYERS SQUIBB COMPANY-12858353

PATIENT
  Age: 61 Year
  Sex: Female

DRUGS (11)
  1. PARAPLATIN [Suspect]
     Indication: OVARIAN CANCER
     Dosage: DOSAGE:M  AUC 5 (MG/ML-MIN)
     Route: 042
     Dates: start: 20040622, end: 20040622
  2. ZOFRAN [Concomitant]
     Dates: start: 20040622, end: 20040622
  3. DECADRON [Concomitant]
     Dates: start: 20040622, end: 20040622
  4. COMPAZINE [Concomitant]
     Dates: start: 20040622, end: 20040622
  5. LOVENOX [Concomitant]
     Dosage: START DATE:  18-JUN-^1907^
  6. ATIVAN [Concomitant]
     Dates: start: 20040403
  7. ROBITUSSIN [Concomitant]
     Dates: start: 20040510
  8. OXYCODONE [Concomitant]
     Dates: start: 20040724
  9. COUMADIN [Concomitant]
  10. MIRALAX [Concomitant]
     Dates: start: 20040220
  11. ESOMEPRAZOLE [Concomitant]

REACTIONS (6)
  - ANAEMIA [None]
  - FALL [None]
  - GASTRITIS [None]
  - GASTROINTESTINAL HAEMORRHAGE [None]
  - LOSS OF CONSCIOUSNESS [None]
  - THROMBOCYTOPENIA [None]
